FAERS Safety Report 18352423 (Version 1)
Quarter: 2020Q4

REPORT INFORMATION
  Report Type: Report from Study
  Country: None (occurrence: US)
  Receive Date: 20201007
  Receipt Date: 20201007
  Transmission Date: 20210114
  Serious: Yes (Hospitalization)
  Sender: FDA-Public Use
  Company Number: US-ABBVIE-20K-163-3497895-00

PATIENT
  Sex: Female

DRUGS (5)
  1. VENCLEXTA [Suspect]
     Active Substance: VENETOCLAX
     Indication: MYELODYSPLASTIC SYNDROME
     Dosage: DAY 1
     Route: 048
     Dates: start: 20200504, end: 20200504
  2. VENCLEXTA [Suspect]
     Active Substance: VENETOCLAX
     Route: 048
     Dates: start: 20200701, end: 2020
  3. VENCLEXTA [Suspect]
     Active Substance: VENETOCLAX
     Dosage: DAY 2
     Route: 048
     Dates: start: 20200505, end: 20200505
  4. VENCLEXTA [Suspect]
     Active Substance: VENETOCLAX
     Route: 048
  5. VENCLEXTA [Suspect]
     Active Substance: VENETOCLAX
     Route: 048
     Dates: start: 20200506, end: 20200630

REACTIONS (1)
  - Illness [Unknown]

NARRATIVE: CASE EVENT DATE: 2020
